FAERS Safety Report 23040715 (Version 1)
Quarter: 2023Q4

REPORT INFORMATION
  Report Type: Spontaneous
  Country: SG (occurrence: SG)
  Receive Date: 20231006
  Receipt Date: 20231006
  Transmission Date: 20240110
  Serious: Yes (Death)
  Sender: FDA-Public Use
  Company Number: SG-PFM-2023-05270

PATIENT
  Sex: Female

DRUGS (3)
  1. ENCORAFENIB [Suspect]
     Active Substance: ENCORAFENIB
     Indication: Colorectal cancer
     Dosage: 300 MG, DAILY
     Route: 065
     Dates: start: 202302
  2. ENCORAFENIB [Suspect]
     Active Substance: ENCORAFENIB
     Dosage: 150 MG, DAILY
     Route: 065
  3. CETUXIMAB [Concomitant]
     Active Substance: CETUXIMAB
     Indication: Colorectal cancer
     Dosage: UNK
     Route: 065
     Dates: start: 202302

REACTIONS (4)
  - Death [Fatal]
  - Fatigue [Unknown]
  - Rash [Unknown]
  - Neoplasm progression [Unknown]

NARRATIVE: CASE EVENT DATE: 20230501
